FAERS Safety Report 7835335-3 (Version None)
Quarter: 2011Q4

REPORT INFORMATION
  Report Type: 
  Country: None (occurrence: None)
  Receive Date: 20111024
  Receipt Date: 20111014
  Transmission Date: 20120403
  Serious: Yes (Disabling, Other)
  Sender: FDA-Public Use
  Company Number: US-ASTRAZENECA-2011SE58542

PATIENT
  Age: 60 Year
  Sex: Female

DRUGS (1)
  1. TOPROL-XL [Suspect]
     Indication: BLOOD PRESSURE
     Route: 048

REACTIONS (2)
  - DISABILITY [None]
  - PERIPHERAL NERVE INJURY [None]
